FAERS Safety Report 18246404 (Version 1)
Quarter: 2020Q3

REPORT INFORMATION
  Report Type: Spontaneous
  Country: US (occurrence: US)
  Receive Date: 20200908
  Receipt Date: 20200908
  Transmission Date: 20201103
  Serious: Yes (Hospitalization)
  Sender: FDA-Public Use
  Company Number: None

PATIENT
  Age: 73 Year
  Sex: Female

DRUGS (14)
  1. DILTIAZEM ER [Concomitant]
     Active Substance: DILTIAZEM
  2. FLUTICASONE. [Concomitant]
     Active Substance: FLUTICASONE
  3. NITROGLYCER DIS [Concomitant]
  4. TRESIBA FLEX [Concomitant]
  5. ALBUTEROL AER [Concomitant]
     Active Substance: ALBUTEROL
  6. CLOPIDOGREL [Concomitant]
     Active Substance: CLOPIDOGREL BISULFATE
  7. REPATHA [Suspect]
     Active Substance: EVOLOCUMAB
     Indication: TYPE V HYPERLIPIDAEMIA
     Dosage: ?          OTHER DOSE:1 PEN;?
     Route: 058
     Dates: start: 20181031
  8. METOPROL SUC ER [Concomitant]
  9. LOSARTAN POT [Concomitant]
     Active Substance: LOSARTAN POTASSIUM
  10. MONTELUKAST [Concomitant]
     Active Substance: MONTELUKAST SODIUM
  11. LEOVTHROXIN [Concomitant]
  12. NITROGLYCERN [Concomitant]
  13. ELIQUIS [Concomitant]
     Active Substance: APIXABAN
  14. IPRATROPIUM [Concomitant]
     Active Substance: IPRATROPIUM

REACTIONS (1)
  - Atrial fibrillation [None]

NARRATIVE: CASE EVENT DATE: 20200405
